FAERS Safety Report 6473349-9 (Version None)
Quarter: 2009Q4

REPORT INFORMATION
  Report Type: 
  Country: None (occurrence: None)
  Receive Date: 20091204
  Receipt Date: 20080922
  Transmission Date: 20100525
  Serious: Yes (Hospitalization)
  Sender: FDA-Public Use
  Company Number: US-ELI_LILLY_AND_COMPANY-US200808003804

PATIENT
  Sex: Female
  Weight: 55.78 kg

DRUGS (9)
  1. FORTEO [Suspect]
     Indication: OSTEOPOROSIS
     Dosage: 20 UG, DAILY (1/D)
     Route: 058
     Dates: start: 20070518
  2. CARDIZEM [Concomitant]
     Dosage: 240 MG, DAILY (1/D)
     Route: 048
  3. SPIRONOLACTONE [Concomitant]
     Dosage: 50 MG, DAILY (1/D)
  4. CLONIDINE [Concomitant]
     Dosage: 0.1 MG, 2/D
  5. CALTRATE [Concomitant]
     Dosage: 350 MG, 3/D
  6. MAGNESIUM OXIDE [Concomitant]
     Dosage: 800 MG, DAILY (1/D)
     Route: 048
  7. MULTI-VITAMINS [Concomitant]
     Dosage: UNK, DAILY (1/D)
  8. TRAMADOL HCL [Concomitant]
     Dosage: 30 MG, AS NEEDED
     Route: 048
  9. RHINOCORT [Concomitant]
     Dosage: UNK, AS NEEDED

REACTIONS (1)
  - ULCER HAEMORRHAGE [None]
